FAERS Safety Report 9437185 (Version 4)
Quarter: 2015Q3

REPORT INFORMATION
  Report Type: Spontaneous
  Country: DK (occurrence: DK)
  Receive Date: 20130802
  Receipt Date: 20150901
  Transmission Date: 20151125
  Serious: Yes (Other)
  Sender: FDA-Public Use
  Company Number: PHHY2013DK080347

PATIENT
  Age: 66 Year
  Sex: Female

DRUGS (5)
  1. TAMOXIFEN [Concomitant]
     Active Substance: TAMOXIFEN
     Indication: BREAST CANCER METASTATIC
     Dosage: 20 MG, QD
     Route: 048
  2. FOSAMAX [Suspect]
     Active Substance: ALENDRONATE SODIUM
     Indication: PRODUCT USED FOR UNKNOWN INDICATION
     Dosage: 70 MG, QW
     Route: 048
     Dates: start: 20120702
  3. PREDNISOLON [Concomitant]
     Active Substance: PREDNISOLONE
     Indication: BREAST CANCER
     Dosage: 2.5 MG TO 50 MG DAILY (RANGING)
     Route: 048
     Dates: start: 201202
  4. CORTICOSTEROIDS [Concomitant]
     Active Substance: CORTICOSTEROID NOS
     Indication: PRODUCT USED FOR UNKNOWN INDICATION
     Route: 065
  5. ZOMETA [Suspect]
     Active Substance: ZOLEDRONIC ACID
     Indication: METASTASES TO BONE
     Dosage: 4 MG/100 ML
     Route: 042
     Dates: start: 201002, end: 20120702

REACTIONS (5)
  - Osteonecrosis of jaw [Recovered/Resolved]
  - Mouth swelling [Recovered/Resolved]
  - Exposed bone in jaw [Recovered/Resolved]
  - Infection [Recovered/Resolved]
  - Pain in jaw [Recovered/Resolved]

NARRATIVE: CASE EVENT DATE: 20120910
